FAERS Safety Report 9158371 (Version 1)
Quarter: 2013Q1

REPORT INFORMATION
  Report Type: Spontaneous
  Country: GR (occurrence: GR)
  Receive Date: 20130312
  Receipt Date: 20130312
  Transmission Date: 20140127
  Serious: Yes (Death)
  Sender: FDA-Public Use
  Company Number: GR-TEVA-390030ISR

PATIENT
  Age: 72 Year
  Sex: Female

DRUGS (5)
  1. AMLODIPINE [Suspect]
     Dosage: 5 MILLIGRAM DAILY;
     Route: 065
  2. LITHIUM [Interacting]
     Dosage: 900 MILLIGRAM DAILY;
     Route: 065
  3. ESCITALOPRAM [Interacting]
     Dosage: 20 MILLIGRAM DAILY;
     Route: 065
  4. BUSPIRONE [Interacting]
     Dosage: 10 MILLIGRAM DAILY;
     Route: 065
  5. IRBESARTAN [Interacting]
     Dosage: 150 MILLIGRAM DAILY;
     Route: 065

REACTIONS (6)
  - Neuroleptic malignant syndrome [Fatal]
  - Rhabdomyolysis [Not Recovered/Not Resolved]
  - Renal failure acute [Not Recovered/Not Resolved]
  - Acute respiratory distress syndrome [Fatal]
  - Cardio-respiratory arrest [Fatal]
  - Drug interaction [Fatal]
